FAERS Safety Report 6715197-8 (Version None)
Quarter: 2010Q2

REPORT INFORMATION
  Report Type: 
  Country: None (occurrence: None)
  Receive Date: 20100507
  Receipt Date: 20100427
  Transmission Date: 20101027
  Serious: Yes (Hospitalization, Other)
  Sender: FDA-Public Use
  Company Number: US-JNJFOC-20100407463

PATIENT
  Sex: Male
  Weight: 54.5 kg

DRUGS (7)
  1. REMICADE [Suspect]
     Indication: CROHN'S DISEASE
     Route: 042
  2. REMICADE [Suspect]
     Route: 042
  3. PREDNISONE [Concomitant]
  4. PROTONIX [Concomitant]
  5. MERCAPTOPURINE [Concomitant]
  6. FLAGYL [Concomitant]
  7. MAALOX [Concomitant]

REACTIONS (1)
  - CROHN'S DISEASE [None]
